FAERS Safety Report 8602602-5 (Version None)
Quarter: 2012Q3

REPORT INFORMATION
  Report Type: 
  Country: None (occurrence: None)
  Receive Date: 20120817
  Receipt Date: 19891017
  Transmission Date: 20120928
  Serious: Yes (Hospitalization)
  Sender: FDA-Public Use
  Company Number: US-ROCHE-1101266

PATIENT
  Sex: Male

DRUGS (8)
  1. ACTIVASE [Suspect]
     Indication: MYOCARDIAL INFARCTION
     Dosage: OVER 2 MG PER HOUR
     Route: 040
  2. NITROGLYCERIN [Concomitant]
  3. RINGER'S INJECTION, LACTATED [Concomitant]
  4. ASPIRIN [Concomitant]
     Route: 048
  5. MORPHINE SULFATE [Concomitant]
     Route: 042
  6. LIDOCAINE BOLUS [Concomitant]
     Route: 040
  7. MORPHINE SULFATE [Concomitant]
     Route: 042
  8. HEPARIN [Concomitant]
     Route: 042

REACTIONS (3)
  - CHEST PAIN [None]
  - VENTRICULAR TACHYCARDIA [None]
  - NODAL RHYTHM [None]
